FAERS Safety Report 5694921-X (Version None)
Quarter: 2008Q2

REPORT INFORMATION
  Report Type: 
  Country: None (occurrence: None)
  Receive Date: 20080404
  Receipt Date: 20080328
  Transmission Date: 20081010
  Serious: Yes (Hospitalization)
  Sender: FDA-Public Use
  Company Number: TW-BRISTOL-MYERS SQUIBB COMPANY-14137640

PATIENT
  Age: 50 Year
  Sex: Male
  Weight: 49 kg

DRUGS (3)
  1. ERBITUX [Suspect]
     Indication: OESOPHAGEAL CARCINOMA
     Dosage: RECEIVED LOADING DOSE OF 400MG/M2 IV ON 15MAY07
     Route: 042
     Dates: start: 20070522
  2. CISPLATIN [Concomitant]
     Indication: OESOPHAGEAL CARCINOMA
     Dosage: 01MAY07(33MG), 8MAY07,15MAY07 (30MG), 22MAY07 (30MG) AND 29MAY07, 125MG ON 11SEP07
     Route: 042
     Dates: start: 20070501
  3. FLUOROURACIL [Concomitant]
     Indication: OESOPHAGEAL CARCINOMA
     Route: 042
     Dates: start: 20070910

REACTIONS (1)
  - DEEP VEIN THROMBOSIS [None]
